FAERS Safety Report 4419617-3 (Version None)
Quarter: 2004Q3

REPORT INFORMATION
  Report Type: 
  Country: None (occurrence: None)
  Receive Date: 20040809
  Receipt Date: 20040226
  Transmission Date: 20050211
  Serious: No
  Sender: FDA-Public Use
  Company Number: US-GLAXOSMITHKLINE-A0500138A

PATIENT
  Age: 42 Year
  Sex: Male

DRUGS (2)
  1. PAXIL [Suspect]
     Route: 048
  2. RISPERDAL [Concomitant]

REACTIONS (2)
  - SCOTOMA [None]
  - VISUAL FIELD DEFECT [None]
